FAERS Safety Report 8455367-4 (Version None)
Quarter: 2012Q2

REPORT INFORMATION
  Report Type: 
  Country: None (occurrence: None)
  Receive Date: 20120621
  Receipt Date: 20120614
  Transmission Date: 20120825
  Serious: Yes (Other)
  Sender: FDA-Public Use
  Company Number: MX-JNJFOC-20120600278

PATIENT
  Sex: Male
  Weight: 55 kg

DRUGS (7)
  1. PRAVASTATINA [Concomitant]
     Route: 065
     Dates: start: 20020101
  2. TYLENOL-500 [Suspect]
     Route: 048
  3. ENALAPRIL MALEATE [Concomitant]
     Route: 065
     Dates: start: 20020101
  4. ISOSORBIDE DINITRATE [Concomitant]
     Route: 065
     Dates: start: 20020101
  5. METOPROLOL [Concomitant]
     Route: 065
     Dates: start: 20020101
  6. TYLENOL-500 [Suspect]
     Indication: COAGULOPATHY
     Route: 048
  7. CLONAZEPAM [Concomitant]
     Route: 065
     Dates: start: 20020101

REACTIONS (1)
  - CHOLELITHIASIS [None]
